FAERS Safety Report 6767084-7 (Version None)
Quarter: 2010Q2

REPORT INFORMATION
  Report Type: 
  Country: None (occurrence: None)
  Receive Date: 20100614
  Receipt Date: 20100604
  Transmission Date: 20101027
  Serious: Yes (Other)
  Sender: FDA-Public Use
  Company Number: CZ-SP-2010-03051

PATIENT

DRUGS (1)
  1. IMMUCYST [Suspect]
     Indication: BLADDER TRANSITIONAL CELL CARCINOMA
     Dosage: NOT REPORTED
     Route: 043

REACTIONS (9)
  - BALANOPOSTHITIS [None]
  - BLADDER PAIN [None]
  - CONTRACTED BLADDER [None]
  - CYSTITIS [None]
  - DYSURIA [None]
  - HAEMATURIA [None]
  - PROSTATITIS [None]
  - PYREXIA [None]
  - RENAL TUBULAR DISORDER [None]
